FAERS Safety Report 24204887 (Version 2)
Quarter: 2024Q3

REPORT INFORMATION
  Report Type: Spontaneous
  Country: GR (occurrence: GR)
  Receive Date: 20240813
  Receipt Date: 20240820
  Transmission Date: 20241017
  Serious: Yes (Other)
  Sender: ACCORD
  Company Number: GR-Accord-440172

PATIENT
  Age: 64 Year
  Sex: Male

DRUGS (26)
  1. CISPLATIN [Suspect]
     Active Substance: CISPLATIN
     Indication: Adrenocortical carcinoma
     Dosage: 6 CYCLES
     Dates: start: 2023
  2. ETOPOSIDE [Suspect]
     Active Substance: ETOPOSIDE
     Indication: Adrenocortical carcinoma
     Dosage: SIX CYCLES
     Dates: start: 2023
  3. DOXORUBICIN [Suspect]
     Active Substance: DOXORUBICIN
     Indication: Adrenocortical carcinoma
     Dosage: SIX CYCLE
     Dates: start: 2023
  4. MITOTANE [Suspect]
     Active Substance: MITOTANE
     Indication: Adrenocortical carcinoma
     Dosage: HIGH-DOSE/ MAXIMUM
     Dates: start: 2023, end: 2023
  5. HYDROCORTISONE [Concomitant]
     Active Substance: HYDROCORTISONE\HYDROCORTISONE ACETATE
     Indication: Adrenocortical carcinoma
     Dates: start: 2023
  6. FLUDROCORTISONE [Concomitant]
     Active Substance: FLUDROCORTISONE
     Indication: Metastases to lung
     Dates: start: 2023
  7. FLUDROCORTISONE [Concomitant]
     Active Substance: FLUDROCORTISONE
     Indication: Adrenal gland cancer metastatic
  8. FLUDROCORTISONE [Concomitant]
     Active Substance: FLUDROCORTISONE
     Indication: Metastases to liver
  9. FLUDROCORTISONE [Concomitant]
     Active Substance: FLUDROCORTISONE
     Indication: Adrenocortical carcinoma
  10. HYDROCORTISONE [Concomitant]
     Active Substance: HYDROCORTISONE\HYDROCORTISONE ACETATE
     Indication: Adrenal gland cancer metastatic
     Dates: start: 2023
  11. HYDROCORTISONE [Concomitant]
     Active Substance: HYDROCORTISONE\HYDROCORTISONE ACETATE
     Indication: Metastases to lung
     Dates: start: 2023
  12. HYDROCORTISONE [Concomitant]
     Active Substance: HYDROCORTISONE\HYDROCORTISONE ACETATE
     Indication: Metastases to liver
     Dates: start: 2023
  13. ETOPOSIDE [Suspect]
     Active Substance: ETOPOSIDE
     Indication: Adrenal gland cancer metastatic
     Dosage: SIX CYCLES
  14. ETOPOSIDE [Suspect]
     Active Substance: ETOPOSIDE
     Indication: Metastases to liver
     Dosage: SIX CYCLES
     Dates: start: 2023
  15. ETOPOSIDE [Suspect]
     Active Substance: ETOPOSIDE
     Indication: Metastases to lung
     Dosage: SIX CYCLES
     Dates: start: 2023
  16. CISPLATIN [Suspect]
     Active Substance: CISPLATIN
     Indication: Metastases to lung
     Dosage: 6 CYCLES
     Dates: start: 2023
  17. CISPLATIN [Suspect]
     Active Substance: CISPLATIN
     Indication: Adrenal gland cancer metastatic
     Dosage: 6 CYCLES
     Dates: start: 2023
  18. CISPLATIN [Suspect]
     Active Substance: CISPLATIN
     Indication: Metastases to liver
     Dosage: 6 CYCLES
     Dates: start: 2023
  19. DOXORUBICIN [Suspect]
     Active Substance: DOXORUBICIN
     Indication: Adrenal gland cancer metastatic
     Dosage: SIX CYCLE
     Dates: start: 2023
  20. DOXORUBICIN [Suspect]
     Active Substance: DOXORUBICIN
     Indication: Metastases to lung
     Dosage: SIX CYCLE
     Dates: start: 2023
  21. DOXORUBICIN [Suspect]
     Active Substance: DOXORUBICIN
     Indication: Metastases to liver
     Dosage: SIX CYCLE
     Dates: start: 2023
  22. MITOTANE [Suspect]
     Active Substance: MITOTANE
     Indication: Metastases to liver
     Dates: start: 2023
  23. MITOTANE [Suspect]
     Active Substance: MITOTANE
     Indication: Adrenal gland cancer metastatic
     Dates: start: 2023
  24. MITOTANE [Suspect]
     Active Substance: MITOTANE
     Indication: Metastases to lung
     Dates: start: 2023
  25. MITOTANE [Suspect]
     Active Substance: MITOTANE
     Indication: Adrenocortical carcinoma
     Dosage: TITRATION OF THE MITOTANE DOSE
     Dates: start: 2023
  26. MITOTANE [Suspect]
     Active Substance: MITOTANE
     Indication: Adrenocortical carcinoma
     Dosage: TITRATION OF THE MITOTANE DOSE
     Dates: start: 2023, end: 2023

REACTIONS (7)
  - Nausea [Unknown]
  - Fatigue [Unknown]
  - Off label use [Unknown]
  - Gait disturbance [Unknown]
  - Memory impairment [Unknown]
  - Neurological symptom [Unknown]
  - Disturbance in attention [Unknown]

NARRATIVE: CASE EVENT DATE: 20230101
